FAERS Safety Report 8770182 (Version 1)
Quarter: 2012Q4

REPORT INFORMATION
  Report Type: Report from Study
  Country: US (occurrence: US)
  Receive Date: 20120905
  Receipt Date: 20120905
  Transmission Date: 20130627
  Serious: No
  Sender: FDA-Public Use
  Company Number: US-ROCHE-GNE204780

PATIENT
  Age: 15 Year
  Sex: Female
  Weight: 36.78 kg

DRUGS (2)
  1. SOMATROPIN [Suspect]
     Indication: GROWTH HORMONE DEFICIENCY
     Dosage: 3.3 mg, qd
     Route: 065
     Dates: start: 19970724, end: 20031003
  2. SOMATROPIN [Suspect]
     Indication: DWARFISM

REACTIONS (3)
  - Bone development abnormal [Recovering/Resolving]
  - Headache [Unknown]
  - Nausea [Unknown]
